FAERS Safety Report 9746966 (Version 1)
Quarter: 2013Q4

REPORT INFORMATION
  Report Type: Spontaneous
  Country: US (occurrence: US)
  Receive Date: 20131211
  Receipt Date: 20131211
  Transmission Date: 20140711
  Serious: No
  Sender: FDA-Public Use
  Company Number: US-009507513-1311USA006516

PATIENT
  Age: 80 Year
  Sex: Female

DRUGS (2)
  1. ZETIA [Suspect]
     Indication: BLOOD CHOLESTEROL INCREASED
     Dosage: 10MG, QD, TAKEN IN THE EVENING
     Route: 048
     Dates: start: 201111
  2. ZETIA [Suspect]
     Dosage: PATIENT HAS TAKEN HALF OF A 10 MG TABLET, ONCE DAILY IN THE EVENING
     Route: 048
     Dates: start: 20131110

REACTIONS (3)
  - Underdose [Unknown]
  - Myalgia [Recovered/Resolved]
  - Headache [Recovered/Resolved]
